FAERS Safety Report 5195689-6 (Version None)
Quarter: 2006Q4

REPORT INFORMATION
  Report Type: 
  Country: None (occurrence: None)
  Receive Date: 20061226
  Receipt Date: 20061226
  Transmission Date: 20070319
  Serious: No
  Sender: FDA-Public Use
  Company Number: None

PATIENT
  Age: 56 Year
  Sex: Male
  Weight: 81.6475 kg

DRUGS (1)
  1. CIPROFLOXACIN HCL [Suspect]
     Indication: PROSTATE INFECTION
     Dosage: 500 M/G TWICE A DAY PO
     Route: 048
     Dates: start: 20060329, end: 20060419

REACTIONS (11)
  - ANXIETY [None]
  - FATIGUE [None]
  - IMPAIRED WORK ABILITY [None]
  - MALAISE [None]
  - MUSCLE FATIGUE [None]
  - MUSCLE SPASMS [None]
  - MUSCULAR WEAKNESS [None]
  - NAUSEA [None]
  - NERVOUSNESS [None]
  - NEUROPATHY [None]
  - TREMOR [None]
